FAERS Safety Report 10964520 (Version 1)
Quarter: 2015Q1

REPORT INFORMATION
  Report Type: Spontaneous
  Country: US (occurrence: None)
  Receive Date: 20150226
  Receipt Date: 20150226
  Transmission Date: 20150721
  Serious: Yes (Other)
  Sender: FDA-Public Use
  Company Number: TPA2012A01519

PATIENT
  Age: 55 Year
  Sex: Male
  Weight: 156.49 kg

DRUGS (6)
  1. LANTUS [Concomitant]
     Active Substance: INSULIN GLARGINE
  2. LORTAB 7.5/500 (PARACETAMOL, HYDROCODONE BITARTRATE) [Concomitant]
  3. VALIUM [Concomitant]
     Active Substance: DIAZEPAM
  4. ACTOS [Suspect]
     Active Substance: PIOGLITAZONE HYDROCHLORIDE
     Indication: TYPE 2 DIABETES MELLITUS
     Dates: start: 201005, end: 201109
  5. GLARGINE (LANTUS (INSULIN GLARGINE) [Concomitant]
  6. JANUVIA [Concomitant]
     Active Substance: SITAGLIPTIN PHOSPHATE

REACTIONS (1)
  - Bladder cancer [None]

NARRATIVE: CASE EVENT DATE: 201109
